FAERS Safety Report 13398478 (Version 1)
Quarter: 2017Q2

REPORT INFORMATION
  Report Type: Spontaneous
  Country: CA (occurrence: CA)
  Receive Date: 20170403
  Receipt Date: 20170403
  Transmission Date: 20170830
  Serious: Yes (Other)
  Sender: FDA-Public Use
  Company Number: CA-009507513-1703CAN013135

PATIENT
  Sex: Male

DRUGS (1)
  1. INVANZ [Suspect]
     Active Substance: ERTAPENEM SODIUM
     Indication: INFECTION PROPHYLAXIS
     Dosage: UNK
     Route: 042
     Dates: start: 201703, end: 201703

REACTIONS (4)
  - Urinary tract discomfort [Unknown]
  - Product use issue [Unknown]
  - Dysuria [Unknown]
  - Urinary tract infection fungal [Unknown]

NARRATIVE: CASE EVENT DATE: 201703
